FAERS Safety Report 5066063-8 (Version None)
Quarter: 2006Q3

REPORT INFORMATION
  Report Type: 
  Country: None (occurrence: None)
  Receive Date: 20060731
  Receipt Date: 20060726
  Transmission Date: 20061208
  Serious: Yes (Hospitalization)
  Sender: FDA-Public Use
  Company Number: DE-MERCK-0607DEU00202

PATIENT
  Sex: Male

DRUGS (1)
  1. PROSCAR [Suspect]
     Indication: PROSTATIC DISORDER
     Route: 048
     Dates: start: 20020601, end: 20030301

REACTIONS (2)
  - PROSTATIC DISORDER [None]
  - TESTICULAR DISORDER [None]
